FAERS Safety Report 24245586 (Version 5)
Quarter: 2025Q1

REPORT INFORMATION
  Report Type: Report from Study
  Country: BR (occurrence: BR)
  Receive Date: 20240824
  Receipt Date: 20250124
  Transmission Date: 20250408
  Serious: Yes (Other)
  Sender: CELLTRION
  Company Number: BR-CELLTRION INC.-2023BR024425

PATIENT

DRUGS (10)
  1. INFLIXIMAB-DYYB [Suspect]
     Active Substance: INFLIXIMAB-DYYB
     Indication: Colitis ulcerative
     Route: 042
     Dates: start: 20230112
  2. INFLIXIMAB-DYYB [Suspect]
     Active Substance: INFLIXIMAB-DYYB
     Dosage: 3 AMPOULES (300MG TOTAL) EVERY 4 WEEKS
     Route: 042
     Dates: start: 202308
  3. INFLIXIMAB-DYYB [Suspect]
     Active Substance: INFLIXIMAB-DYYB
     Dosage: UNK, MONTHLY
     Route: 042
     Dates: start: 20240828
  4. INFLIXIMAB-DYYB [Suspect]
     Active Substance: INFLIXIMAB-DYYB
     Dosage: 3 VIALS EVERY 4 WEEKS
     Route: 042
     Dates: start: 20241129
  5. AZATHIOPRINE [Concomitant]
     Active Substance: AZATHIOPRINE
     Indication: Colitis ulcerative
     Route: 048
  6. AZATHIOPRINE [Concomitant]
     Active Substance: AZATHIOPRINE
     Route: 048
  7. MESALAMINE [Concomitant]
     Active Substance: MESALAMINE
     Indication: Colitis ulcerative
     Route: 048
     Dates: start: 202211
  8. MESALAMINE [Concomitant]
     Active Substance: MESALAMINE
     Route: 048
  9. URSODIOL [Concomitant]
     Active Substance: URSODIOL
     Indication: Product used for unknown indication
     Route: 048
  10. ESCITALOPRAM [Concomitant]
     Active Substance: ESCITALOPRAM OXALATE
     Indication: Product used for unknown indication
     Route: 048

REACTIONS (17)
  - Dysmenorrhoea [Recovering/Resolving]
  - Premenstrual pain [Recovering/Resolving]
  - Anaemia [Recovered/Resolved]
  - Allergic pharyngitis [Recovered/Resolved]
  - Device infusion issue [Recovered/Resolved]
  - Inflammation [Recovering/Resolving]
  - Viral infection [Recovering/Resolving]
  - Abdominal pain [Recovering/Resolving]
  - Diarrhoea [Recovering/Resolving]
  - Headache [Recovering/Resolving]
  - Nausea [Recovering/Resolving]
  - Influenza like illness [Recovered/Resolved]
  - Influenza [Recovered/Resolved]
  - Product dose omission issue [Unknown]
  - Intentional dose omission [Unknown]
  - Therapy non-responder [Recovering/Resolving]
  - Intentional product use issue [Unknown]

NARRATIVE: CASE EVENT DATE: 20230701
